FAERS Safety Report 25240237 (Version 1)
Quarter: 2025Q2

REPORT INFORMATION
  Report Type: Spontaneous
  Country: US (occurrence: None)
  Receive Date: 20250425
  Receipt Date: 20250425
  Transmission Date: 20250717
  Serious: Yes (Life-Threatening, Hospitalization, Disabling)
  Sender: FDA-CTU
  Company Number: None

PATIENT
  Age: 30 Year
  Sex: Female
  Weight: 45 kg

DRUGS (7)
  1. ABILIFY ASIMTUFII [Suspect]
     Active Substance: ARIPIPRAZOLE
     Indication: Anxiety
     Dates: start: 20250323, end: 20250417
  2. ABILIFY ASIMTUFII [Suspect]
     Active Substance: ARIPIPRAZOLE
     Indication: Depression
  3. ABILIFY ASIMTUFII [Suspect]
     Active Substance: ARIPIPRAZOLE
  4. Remeron 15 mg [Concomitant]
  5. RISPERDAL [Concomitant]
     Active Substance: RISPERIDONE
  6. Vistaril 50 mg [Concomitant]
  7. ABILIFY [Suspect]
     Active Substance: ARIPIPRAZOLE

REACTIONS (3)
  - Catatonia [None]
  - Bipolar disorder [None]
  - Impulsive behaviour [None]

NARRATIVE: CASE EVENT DATE: 20250414
